FAERS Safety Report 21269791 (Version 1)
Quarter: 2022Q3

REPORT INFORMATION
  Report Type: Spontaneous
  Country: None (occurrence: GB)
  Receive Date: 20220830
  Receipt Date: 20220830
  Transmission Date: 20221027
  Serious: Yes (Other)
  Sender: FDA-Public Use
  Company Number: GB-Canton Laboratories, LLC-2132375

PATIENT
  Age: 47 Year
  Sex: Female

DRUGS (3)
  1. NAPROSYN [Suspect]
     Active Substance: NAPROXEN
     Indication: Product used for unknown indication
     Route: 048
     Dates: start: 20220718
  2. IBUPROFEN [Concomitant]
     Active Substance: IBUPROFEN
  3. VOLTAROL [Concomitant]
     Active Substance: DICLOFENAC SODIUM
     Dates: start: 20220809

REACTIONS (3)
  - Abdominal pain upper [Recovered/Resolved]
  - Faeces discoloured [Recovered/Resolved]
  - Gastrointestinal haemorrhage [Recovered/Resolved]

NARRATIVE: CASE EVENT DATE: 20220731
